FAERS Safety Report 6732650-1 (Version None)
Quarter: 2010Q2

REPORT INFORMATION
  Report Type: 
  Country: None (occurrence: None)
  Receive Date: 20100517
  Receipt Date: 20100413
  Transmission Date: 20101027
  Serious: Yes (Other)
  Sender: FDA-Public Use
  Company Number: 009549

PATIENT
  Age: 3 Year
  Sex: Male

DRUGS (5)
  1. BUSULFEX [Suspect]
     Indication: STEM CELL TRANSPLANT
     Dosage: 8 MG/KG, INTRAVEOUS
     Route: 042
  2. FLUDARABINE PHOSPHATE [Concomitant]
  3. ENDOXAN NET (CYCLOPHOSPHAMIDE) [Concomitant]
  4. THIOTEPA [Concomitant]
  5. ATG (ANTI LYMPHOCYTE GLOBULIN) [Concomitant]

REACTIONS (3)
  - CANDIDIASIS [None]
  - GRANULOCYTOPENIA [None]
  - PANCYTOPENIA [None]
